FAERS Safety Report 16749482 (Version 1)
Quarter: 2019Q3

REPORT INFORMATION
  Report Type: Spontaneous
  Country: US (occurrence: US)
  Receive Date: 20190828
  Receipt Date: 20190828
  Transmission Date: 20191005
  Serious: No
  Sender: FDA-Public Use
  Company Number: US-SUNOVION-2019SUN003526

PATIENT

DRUGS (2)
  1. LATUDA [Suspect]
     Active Substance: LURASIDONE HYDROCHLORIDE
     Dosage: UNK
     Route: 048
  2. VRAYLAR [Concomitant]
     Active Substance: CARIPRAZINE
     Dosage: UNK
     Route: 065

REACTIONS (1)
  - Drug ineffective [Unknown]
